FAERS Safety Report 5537427-0 (Version None)
Quarter: 2007Q4

REPORT INFORMATION
  Report Type: 
  Country: None (occurrence: None)
  Receive Date: 20071207
  Receipt Date: 20071127
  Transmission Date: 20080405
  Serious: Yes (Hospitalization, Other)
  Sender: FDA-Public Use
  Company Number: PR-GILEAD-2007-0014470

PATIENT
  Sex: Female

DRUGS (5)
  1. EMTRICITABINE [Suspect]
     Indication: HIV INFECTION
     Route: 048
     Dates: start: 20071105, end: 20071105
  2. TENOFOVIR DISOPROXIL FUMARATE [Suspect]
     Indication: HIV INFECTION
     Route: 048
     Dates: start: 20071105, end: 20071105
  3. ZIDOVUDINE [Concomitant]
     Indication: PROPHYLAXIS
     Dates: start: 20071105
  4. ZINC OXIDE [Concomitant]
     Indication: DERMATITIS DIAPER
     Route: 061
     Dates: start: 20071101
  5. MYCOSTATIN [Concomitant]
     Indication: DERMATITIS DIAPER
     Route: 061
     Dates: start: 20071101

REACTIONS (1)
  - HAEMATEMESIS [None]
